FAERS Safety Report 14605005 (Version 1)
Quarter: 2018Q1

REPORT INFORMATION
  Report Type: Spontaneous
  Country: US (occurrence: US)
  Receive Date: 20180306
  Receipt Date: 20180306
  Transmission Date: 20180509
  Serious: Yes (Hospitalization, Other)
  Sender: FDA-Public Use
  Company Number: None

PATIENT
  Age: 40 Year
  Sex: Female
  Weight: 117 kg

DRUGS (3)
  1. SYNTHROID [Concomitant]
     Active Substance: LEVOTHYROXINE SODIUM
  2. HYDROCHLORATHYZIDE [Concomitant]
  3. CONTRAVE [Suspect]
     Active Substance: BUPROPION HYDROCHLORIDE\NALTREXONE HYDROCHLORIDE
     Indication: OBESITY
     Route: 048
     Dates: start: 20180211, end: 20180228

REACTIONS (9)
  - Vomiting [None]
  - Dehydration [None]
  - Abdominal pain [None]
  - Diarrhoea [None]
  - Impaired work ability [None]
  - Pyrexia [None]
  - Abdominal pain upper [None]
  - Nausea [None]
  - Therapy change [None]

NARRATIVE: CASE EVENT DATE: 20180227
